FAERS Safety Report 4698808-0 (Version None)
Quarter: 2005Q2

REPORT INFORMATION
  Report Type: 
  Country: None (occurrence: None)
  Receive Date: 20050621
  Receipt Date: 20050412
  Transmission Date: 20051028
  Serious: Yes (Hospitalization)
  Sender: FDA-Public Use
  Company Number: PHEH2005US04281

PATIENT
  Sex: 0

DRUGS (1)
  1. EXELON [Suspect]
     Route: 065

REACTIONS (1)
  - RENAL IMPAIRMENT [None]
